FAERS Safety Report 9519759 (Version 1)
Quarter: 2013Q3

REPORT INFORMATION
  Report Type: Spontaneous
  Country: US (occurrence: None)
  Receive Date: 20130911
  Receipt Date: 20130911
  Transmission Date: 20140515
  Serious: Yes (Other)
  Sender: FDA-Public Use
  Company Number: None

PATIENT
  Age: 51 Year
  Sex: Female
  Weight: 61.4 kg

DRUGS (2)
  1. OXAZEPAM [Suspect]
     Indication: ALCOHOL WITHDRAWAL SYNDROME
     Dosage: FOR W/DRAWAL SX
     Route: 048
     Dates: start: 20130708
  2. OXAZEPAM [Suspect]
     Indication: ANXIETY
     Dosage: FOR W/DRAWAL SX
     Route: 048
     Dates: start: 20130708

REACTIONS (7)
  - Lip swelling [None]
  - Eye swelling [None]
  - Pruritus generalised [None]
  - Urticaria [None]
  - Hypersensitivity [None]
  - Dysarthria [None]
  - Swollen tongue [None]
